FAERS Safety Report 25499836 (Version 1)
Quarter: 2025Q3

REPORT INFORMATION
  Report Type: Spontaneous
  Country: US (occurrence: US)
  Receive Date: 20250701
  Receipt Date: 20250701
  Transmission Date: 20251020
  Serious: Yes (Other)
  Sender: PFIZER
  Company Number: US-PFIZER INC-202500131063

PATIENT
  Age: 80 Year
  Sex: Female

DRUGS (2)
  1. BRAFTOVI [Suspect]
     Active Substance: ENCORAFENIB
     Indication: Thyroid cancer
     Dosage: 450 MG, 1X/DAY (TAKE 6 CAPSULES (450MG TOTAL) BY MOUTH DAILY
     Route: 048
  2. MEKTOVI [Suspect]
     Active Substance: BINIMETINIB
     Indication: Thyroid cancer
     Dosage: 45 MG, 2X/DAY (3 TABS (45MG) IN THE MORNING AND AT BEDTIME)

REACTIONS (3)
  - Metastases to chest wall [Unknown]
  - Metastases to lung [Unknown]
  - Off label use [Unknown]
